FAERS Safety Report 18212212 (Version 4)
Quarter: 2020Q3

REPORT INFORMATION
  Report Type: Spontaneous
  Country: CN (occurrence: CN)
  Receive Date: 20200831
  Receipt Date: 20200904
  Transmission Date: 20201103
  Serious: Yes (Life-Threatening, Hospitalization, Other)
  Sender: FDA-Public Use
  Company Number: CN-PFIZER INC-2020331960

PATIENT
  Age: 47 Year
  Sex: Female
  Weight: 57 kg

DRUGS (3)
  1. DOXORUBICIN HCL [Suspect]
     Active Substance: DOXORUBICIN HYDROCHLORIDE
     Indication: SARCOMATOID CARCINOMA OF THE LUNG
     Dosage: 40 MG/M2, CYCLIC (FREQ:4 {CYCLICAL};EVERY 3 WEEKS)
     Dates: start: 201804, end: 201807
  2. CAMRELIZUMAB [Suspect]
     Active Substance: CAMRELIZUMAB
     Indication: SARCOMATOID CARCINOMA OF THE LUNG
     Dosage: 200 MG, CYCLIC (FREQ:6 {CYCLICAL};EVERY 2 WEEKS)
     Route: 042
     Dates: start: 201804, end: 201807
  3. NUO XIN [Suspect]
     Active Substance: CISPLATIN
     Indication: SARCOMATOID CARCINOMA OF THE LUNG
     Dosage: 75 MG/M2, CYCLIC (FREQ:4 {CYCLICAL};EVERY 3 WEEKS)
     Dates: start: 201804, end: 201807

REACTIONS (3)
  - Leukopenia [Recovered/Resolved]
  - Thrombocytopenia [Recovered/Resolved]
  - Haematotoxicity [Recovered/Resolved]

NARRATIVE: CASE EVENT DATE: 201807
